FAERS Safety Report 20610546 (Version 2)
Quarter: 2022Q1

REPORT INFORMATION
  Report Type: Spontaneous
  Country: US (occurrence: US)
  Receive Date: 20220318
  Receipt Date: 20220325
  Transmission Date: 20220424
  Serious: No
  Sender: FDA-Public Use
  Company Number: US-BAYER-2022A039860

PATIENT
  Age: 42 Year
  Sex: Female

DRUGS (1)
  1. MIRALAX [Suspect]
     Active Substance: POLYETHYLENE GLYCOL 3350
     Dosage: 17 G, BID, SOMETIMES ONCE A DAY
     Route: 048
     Dates: start: 202202

REACTIONS (2)
  - Product prescribing issue [Unknown]
  - Intentional product use issue [Unknown]
